FAERS Safety Report 11781530 (Version 4)
Quarter: 2016Q4

REPORT INFORMATION
  Report Type: Report from Study
  Country: GR (occurrence: GR)
  Receive Date: 20151126
  Receipt Date: 20161125
  Transmission Date: 20170206
  Serious: No
  Sender: FDA-Public Use
  Company Number: PHHY2015GR150654

PATIENT
  Sex: Female
  Weight: 72 kg

DRUGS (3)
  1. EXELON PATCH [Suspect]
     Active Substance: RIVASTIGMINE
     Dosage: 9.5 MG, QD PATCH 10 (CM2)
     Route: 062
     Dates: start: 20100101
  2. EXELON PATCH [Suspect]
     Active Substance: RIVASTIGMINE
     Indication: COGNITIVE DISORDER
     Dosage: 4.6 MG, QD PATCH 5 (CM2)
     Route: 062
     Dates: start: 20070101
  3. EXELON PATCH [Suspect]
     Active Substance: RIVASTIGMINE
     Dosage: 13.3 MG, QD PATCH 15 (CM2)
     Route: 062
     Dates: start: 20150201

REACTIONS (3)
  - Product use issue [Unknown]
  - Product quality issue [Unknown]
  - Inappropriate schedule of drug administration [Unknown]

NARRATIVE: CASE EVENT DATE: 20070101
